FAERS Safety Report 14242877 (Version 1)
Quarter: 2017Q4

REPORT INFORMATION
  Report Type: Spontaneous
  Country: IN (occurrence: IN)
  Receive Date: 20171201
  Receipt Date: 20171201
  Transmission Date: 20180321
  Serious: Yes (Other)
  Sender: FDA-Public Use
  Company Number: IN-JNJFOC-20171131042

PATIENT
  Age: 52 Year
  Sex: Female

DRUGS (6)
  1. TELMIKIND AMH [Concomitant]
     Route: 065
  2. GALVUSMET [Concomitant]
     Active Substance: METFORMIN HYDROCHLORIDE\VILDAGLIPTIN
     Dosage: AFTER FOOD
     Route: 065
  3. EVIANA [Concomitant]
     Route: 065
  4. MOTIVYST [Suspect]
     Active Substance: CANAGLIFLOZIN
     Indication: PRODUCT USED FOR UNKNOWN INDICATION
     Route: 065
     Dates: start: 20171123
  5. URSOCOL [Concomitant]
     Route: 065
  6. NEUROBION [Concomitant]
     Active Substance: CYANOCOBALAMIN\PYRIDOXINE\THIAMINE
     Route: 065

REACTIONS (2)
  - Feeling abnormal [None]
  - Gastritis [Unknown]
